FAERS Safety Report 21189630 (Version 1)
Quarter: 2022Q3

REPORT INFORMATION
  Report Type: Report from Study
  Country: CA (occurrence: None)
  Receive Date: 20220809
  Receipt Date: 20220809
  Transmission Date: 20221027
  Serious: Yes (Death)
  Sender: FDA-Public Use
  Company Number: 2022A279111

PATIENT
  Age: 24946 Day
  Sex: Male

DRUGS (10)
  1. FASENRA [Suspect]
     Active Substance: BENRALIZUMAB
     Indication: Asthma
     Route: 058
     Dates: start: 20181210, end: 20200428
  2. PREDNISONE [Concomitant]
     Active Substance: PREDNISONE
  3. ADVAIR HFA [Concomitant]
     Active Substance: FLUTICASONE PROPIONATE\SALMETEROL XINAFOATE
     Dosage: 50/500 MCG 1 INH/12H
  4. RISEDRONATE SODIUM [Concomitant]
     Active Substance: RISEDRONATE SODIUM
  5. CALCIUM [Concomitant]
     Active Substance: CALCIUM
  6. VITAMIN D [Concomitant]
     Active Substance: VITAMIN D NOS
  7. SPIRONOLACTONE [Concomitant]
     Active Substance: SPIRONOLACTONE
  8. DIZAN [Concomitant]
  9. VENTOLIN [Concomitant]
     Active Substance: ALBUTEROL SULFATE
  10. SINGULAIR [Concomitant]
     Active Substance: MONTELUKAST SODIUM

REACTIONS (1)
  - Death [Fatal]

NARRATIVE: CASE EVENT DATE: 20220411
